FAERS Safety Report 22281789 (Version 13)
Quarter: 2024Q3

REPORT INFORMATION
  Report Type: Spontaneous
  Country: CA (occurrence: CA)
  Receive Date: 20230504
  Receipt Date: 20240930
  Transmission Date: 20241016
  Serious: Yes (Other)
  Sender: CELLTRION
  Company Number: CA-CELLTRION INC.-2023CA002111

PATIENT

DRUGS (22)
  1. INFLECTRA [Suspect]
     Active Substance: INFLIXIMAB-DYYB
     Indication: Colitis ulcerative
     Dosage: 745 MG (5MG/KG) INDUCTION WEEK 0, W0, W2, W6 AND EVERY 8 WEEKS
     Route: 042
     Dates: start: 20230118, end: 20230118
  2. INFLECTRA [Suspect]
     Active Substance: INFLIXIMAB-DYYB
     Dosage: 755 MG (5MG/KG) INDUCTION WEEK 2, W0, W2, W6 AND EVERY 8 WEEKS
     Route: 042
     Dates: start: 20230202
  3. INFLECTRA [Suspect]
     Active Substance: INFLIXIMAB-DYYB
     Dosage: 5 MG/KG INDUCTION WEEK 6, W0 W2 W6, EVERY 8 WEEKS
     Route: 042
     Dates: start: 20230302
  4. INFLECTRA [Suspect]
     Active Substance: INFLIXIMAB-DYYB
     Dosage: 770 MG (5MG/KG), EVERY 8 WEEKS
     Route: 042
     Dates: start: 20230425, end: 20230425
  5. INFLECTRA [Suspect]
     Active Substance: INFLIXIMAB-DYYB
     Dosage: 770 MG (5MG/KG), EVERY 8 WEEKS
     Route: 042
     Dates: start: 20230620
  6. INFLECTRA [Suspect]
     Active Substance: INFLIXIMAB-DYYB
     Dosage: 760 MG (5MG/KG), AFTER 8 WEEKS AND 1 DAY (PRESCRIBED EVERY 8 WEEKS)
     Route: 042
     Dates: start: 20230816
  7. INFLECTRA [Suspect]
     Active Substance: INFLIXIMAB-DYYB
     Dosage: 750 MG (5MG/KG), EVERY 8 WEEKS
     Route: 042
     Dates: start: 20231011
  8. INFLECTRA [Suspect]
     Active Substance: INFLIXIMAB-DYYB
     Dosage: 760 MG (5MG/KG), EVERY 8 WEEKS
     Route: 042
     Dates: start: 20231205, end: 20231205
  9. INFLECTRA [Suspect]
     Active Substance: INFLIXIMAB-DYYB
     Dosage: 770 MG (5 MG/KG), EVERY 8 WEEKS
     Route: 042
     Dates: start: 20240201
  10. INFLECTRA [Suspect]
     Active Substance: INFLIXIMAB-DYYB
     Dosage: 770MG (5MG/KG), AFTER 8 WEEKS
     Route: 042
     Dates: start: 20240328
  11. INFLECTRA [Suspect]
     Active Substance: INFLIXIMAB-DYYB
     Dosage: 775 MG (5 MG/KG), EVERY 8 WEEKS
     Route: 042
     Dates: start: 20240523
  12. INFLECTRA [Suspect]
     Active Substance: INFLIXIMAB-DYYB
     Dosage: 775 MG (5 MG/KG), EVERY 8 WEEKS
     Route: 042
     Dates: start: 20240523
  13. INFLECTRA [Suspect]
     Active Substance: INFLIXIMAB-DYYB
     Dosage: 765 MG ,9 WEEKS AND 5 DAYS (5 MG/KG, EVERY 8 WEEKS)
     Route: 042
     Dates: start: 20240729
  14. INFLECTRA [Suspect]
     Active Substance: INFLIXIMAB-DYYB
     Dosage: 740 MG ,AFTER 7 WEEKS AND 2 DAYS(5MG/KG,W0, W2, W6 AND EVERY 8 WEEKS )
     Route: 042
     Dates: start: 20240919
  15. ALENDRONATE [Concomitant]
     Active Substance: ALENDRONATE SODIUM
     Dosage: 70 MG, FREQUENCY UNKNOWN
  16. AMLODIPINE [Concomitant]
     Active Substance: AMLODIPINE BESYLATE
     Dosage: 1 DF, UNKNOWN
  17. BUDESONIDE [Concomitant]
     Active Substance: BUDESONIDE
     Dosage: UNK
  18. PERINDOPRIL ARGININE [Concomitant]
     Active Substance: PERINDOPRIL ARGININE
     Dosage: 1 DF, UNKNOWN
  19. MESALAMINE [Concomitant]
     Active Substance: MESALAMINE
     Dosage: 4800 MG, FREQUENCY UNKNOWN
  20. PANTOPRAZOLE SODIUM [Concomitant]
     Active Substance: PANTOPRAZOLE SODIUM
     Dosage: 40 MG, FREQUENCY UNKNOWN
  21. PREDNISONE [Concomitant]
     Active Substance: PREDNISONE
     Dosage: 40 MG, UNKNOWN FREQUENCY
     Dates: start: 202212
  22. MESALAMINE [Concomitant]
     Active Substance: MESALAMINE
     Dosage: 1 G, FREQUENCY UNKNOWN

REACTIONS (12)
  - Muscular weakness [Not Recovered/Not Resolved]
  - Arthralgia [Not Recovered/Not Resolved]
  - Hypertension [Not Recovered/Not Resolved]
  - Haematoma infection [Recovering/Resolving]
  - Arthropathy [Recovering/Resolving]
  - Condition aggravated [Recovered/Resolved]
  - Arthritis [Not Recovered/Not Resolved]
  - Anorectal discomfort [Not Recovered/Not Resolved]
  - Illness [Recovered/Resolved]
  - Constipation [Not Recovered/Not Resolved]
  - Condition aggravated [Not Recovered/Not Resolved]
  - Musculoskeletal discomfort [Recovering/Resolving]

NARRATIVE: CASE EVENT DATE: 20230101
